FAERS Safety Report 8534102-5 (Version None)
Quarter: 2012Q3

REPORT INFORMATION
  Report Type: 
  Country: None (occurrence: None)
  Receive Date: 20120724
  Receipt Date: 20120720
  Transmission Date: 20120928
  Serious: Yes (Life-Threatening, Hospitalization, Other)
  Sender: FDA-Public Use
  Company Number: JP-TEVA-2011001434

PATIENT
  Sex: Male
  Weight: 86.6 kg

DRUGS (7)
  1. SULFAMETTHOXAZOLE AND TRIMETHOPRIM [Suspect]
     Indication: INFECTION PROPHYLAXIS
     Dosage: 1 DF
     Route: 048
     Dates: start: 20110220
  2. RITUXIMAB [Concomitant]
     Indication: MANTLE CELL LYMPHOMA RECURRENT
     Dates: start: 20110222, end: 20110322
  3. DEXAMETHASONE SODIUM PHOSPHATE [Concomitant]
     Dates: start: 20110221, end: 20110222
  4. ALLOPURINOL [Concomitant]
     Dates: start: 20110220, end: 20110317
  5. GRANISETRON HYDROCHLORIDE [Concomitant]
  6. TREANDA [Suspect]
     Route: 042
     Dates: start: 20110323, end: 20110323
  7. TREANDA [Suspect]
     Indication: MANTLE CELL LYMPHOMA RECURRENT
     Route: 042
     Dates: start: 20110223, end: 20110224

REACTIONS (5)
  - ANAPHYLACTIC SHOCK [None]
  - RASH [None]
  - STEVENS-JOHNSON SYNDROME [None]
  - DISEASE PROGRESSION [None]
  - KAPOSI'S VARICELLIFORM ERUPTION [None]
